FAERS Safety Report 5924881-5 (Version None)
Quarter: 2008Q4

REPORT INFORMATION
  Report Type: 
  Country: None (occurrence: None)
  Receive Date: 20081017
  Receipt Date: 20081017
  Transmission Date: 20090506
  Serious: Yes (Hospitalization)
  Sender: FDA-Public Use
  Company Number: None

PATIENT
  Age: 53 Year
  Sex: Female
  Weight: 90.6 kg

DRUGS (2)
  1. DOXORUBICIN HCL [Suspect]
     Indication: BREAST CANCER
     Dosage: 111 MG EVERY 2 WEEKS IV
     Route: 042
     Dates: start: 20080818, end: 20080916
  2. CYCLOPHOSPHAMIDE [Suspect]
     Dosage: 1110 MG EVERY 2 WEEKS IV
     Route: 042
     Dates: start: 20080818, end: 20080916

REACTIONS (5)
  - AGITATION [None]
  - COGNITIVE DISORDER [None]
  - DISORIENTATION [None]
  - DYSPNOEA [None]
  - PANIC ATTACK [None]
